FAERS Safety Report 19316787 (Version 3)
Quarter: 2021Q3

REPORT INFORMATION
  Report Type: Spontaneous
  Country: AT (occurrence: AT)
  Receive Date: 20210527
  Receipt Date: 20210702
  Transmission Date: 20211014
  Serious: Yes (Death, Hospitalization, Other)
  Sender: FDA-Public Use
  Company Number: AT-DSJP-DSE-2021-115405

PATIENT
  Sex: Female

DRUGS (1)
  1. ENHERTU [Suspect]
     Active Substance: FAM-TRASTUZUMAB DERUXTECAN-NXKI
     Indication: BREAST CANCER
     Dosage: UNK

REACTIONS (4)
  - Infection [Unknown]
  - Sepsis [Fatal]
  - Neutropenia [Fatal]
  - Dehydration [Fatal]

NARRATIVE: CASE EVENT DATE: 20210506
